FAERS Safety Report 21302009 (Version 2)
Quarter: 2022Q3

REPORT INFORMATION
  Report Type: Spontaneous
  Country: US (occurrence: US)
  Receive Date: 20220907
  Receipt Date: 20220928
  Transmission Date: 20221027
  Serious: Yes (Hospitalization)
  Sender: FDA-Public Use
  Company Number: US-GLAXOSMITHKLINE-US2022127436

PATIENT

DRUGS (5)
  1. ADVAIR HFA [Suspect]
     Active Substance: FLUTICASONE PROPIONATE\SALMETEROL XINAFOATE
     Indication: Chronic obstructive pulmonary disease
     Dosage: 1 PUFF(S), BID, ORAL INHALATION, 500/50 MCG
     Route: 055
     Dates: start: 20100801
  2. LIPITOR [Suspect]
     Active Substance: ATORVASTATIN CALCIUM
     Indication: Blood cholesterol
     Dosage: UNKNOWN
  3. ELIQUIS [Concomitant]
     Active Substance: APIXABAN
     Indication: Product used for unknown indication
     Dosage: UNK
  4. XANAX [Concomitant]
     Active Substance: ALPRAZOLAM
     Indication: Product used for unknown indication
     Dosage: UNK
  5. PROLACTIN [Concomitant]
     Active Substance: PROLACTIN
     Indication: Product used for unknown indication
     Dosage: UNK

REACTIONS (6)
  - Cholelithiasis [Recovered/Resolved]
  - COVID-19 [Recovered/Resolved]
  - Gallbladder operation [Not Recovered/Not Resolved]
  - Diarrhoea [Unknown]
  - Bedridden [Unknown]
  - Product use in unapproved indication [Unknown]

NARRATIVE: CASE EVENT DATE: 20220508
